FAERS Safety Report 6917553-1 (Version None)
Quarter: 2010Q3

REPORT INFORMATION
  Report Type: 
  Country: None (occurrence: None)
  Receive Date: 20100810
  Receipt Date: 20080822
  Transmission Date: 20110219
  Serious: Yes (Hospitalization, Other)
  Sender: FDA-Public Use
  Company Number: US-PFIZER INC-2008070529

PATIENT
  Sex: Male
  Weight: 70.454 kg

DRUGS (2)
  1. CELEBREX [Suspect]
     Indication: LIGAMENT INJURY
     Route: 048
     Dates: start: 20070901, end: 20071217
  2. DARVOCET [Concomitant]

REACTIONS (6)
  - BLOOD PRESSURE INCREASED [None]
  - DYSPNOEA [None]
  - MYOCARDIAL INFARCTION [None]
  - NASOPHARYNGITIS [None]
  - PERFORATED ULCER [None]
  - SWELLING [None]
